FAERS Safety Report 23601781 (Version 1)
Quarter: 2024Q1

REPORT INFORMATION
  Report Type: Spontaneous
  Country: US (occurrence: US)
  Receive Date: 20240306
  Receipt Date: 20240306
  Transmission Date: 20240410
  Serious: No
  Sender: FDA-Public Use
  Company Number: US-BAYER-2024A034416

PATIENT
  Age: 20 Year
  Sex: Female

DRUGS (1)
  1. ALEVE [Suspect]
     Active Substance: NAPROXEN SODIUM
     Indication: Pain
     Dosage: 4 DF, QD
     Route: 048
     Dates: start: 20240305, end: 20240305

REACTIONS (1)
  - Incorrect dosage administered [None]

NARRATIVE: CASE EVENT DATE: 20240305
